FAERS Safety Report 16985283 (Version 1)
Quarter: 2019Q4

REPORT INFORMATION
  Report Type: Spontaneous
  Country: US (occurrence: US)
  Receive Date: 20191101
  Receipt Date: 20191101
  Transmission Date: 20200122
  Serious: Yes (Hospitalization, Other)
  Sender: FDA-Public Use
  Company Number: US-PFIZER INC-2019467535

PATIENT
  Age: 57 Year
  Sex: Male
  Weight: 83.91 kg

DRUGS (9)
  1. METOPROLOL. [Concomitant]
     Active Substance: METOPROLOL
     Indication: BLOOD PRESSURE ABNORMAL
     Dosage: 50 MG, 2X/DAY
  2. TAPAZOLE [Suspect]
     Active Substance: METHIMAZOLE
     Dosage: 60 MG, UNK
     Dates: start: 20190824
  3. TAPAZOLE [Suspect]
     Active Substance: METHIMAZOLE
     Dosage: 60 MG, UNK
     Dates: start: 20190827
  4. METOPROLOL. [Concomitant]
     Active Substance: METOPROLOL
     Dosage: 100 MG, 2X/DAY
     Dates: start: 201907
  5. TAPAZOLE [Suspect]
     Active Substance: METHIMAZOLE
     Indication: THYROTOXIC CRISIS
     Dosage: 20 MG, 4X/DAY
     Dates: end: 20190829
  6. TAPAZOLE [Suspect]
     Active Substance: METHIMAZOLE
     Dosage: 5 MG, UNK
  7. TAPAZOLE [Suspect]
     Active Substance: METHIMAZOLE
     Dosage: 80 MG, UNK (DURING 24HOURS)
  8. TAPAZOLE [Suspect]
     Active Substance: METHIMAZOLE
     Dosage: 20 MG, 2X/DAY
  9. TAPAZOLE [Suspect]
     Active Substance: METHIMAZOLE
     Dosage: 60 MG, (IN AN 8 HOUR PERIOD)

REACTIONS (7)
  - Mitral valve incompetence [Unknown]
  - Heart rate increased [Recovering/Resolving]
  - Cardiac failure [Unknown]
  - Mitral valve disease [Unknown]
  - Atrial fibrillation [Unknown]
  - Muscle atrophy [Unknown]
  - Ventricular tachycardia [Unknown]
